FAERS Safety Report 15103919 (Version 2)
Quarter: 2019Q1

REPORT INFORMATION
  Report Type: Spontaneous
  Country: US (occurrence: US)
  Receive Date: 20180703
  Receipt Date: 20190211
  Transmission Date: 20190417
  Serious: Yes (Hospitalization)
  Sender: FDA-Public Use
  Company Number: US-OTSUKA-2018_018133

PATIENT

DRUGS (4)
  1. ABILIFY [Suspect]
     Active Substance: ARIPIPRAZOLE
     Indication: EATING DISORDER
  2. ABILIFY [Suspect]
     Active Substance: ARIPIPRAZOLE
     Indication: OBSESSIVE-COMPULSIVE DISORDER
  3. ABILIFY [Suspect]
     Active Substance: ARIPIPRAZOLE
     Indication: MAJOR DEPRESSION
     Dosage: 5MG-10MG QD
     Route: 065
     Dates: start: 2004, end: 20161014
  4. ABILIFY [Suspect]
     Active Substance: ARIPIPRAZOLE
     Indication: PERSONALITY DISORDER

REACTIONS (8)
  - Eating disorder [Not Recovered/Not Resolved]
  - Gambling disorder [Recovered/Resolved]
  - Impulse-control disorder [Unknown]
  - Mental disorder [Unknown]
  - Obsessive-compulsive disorder [Unknown]
  - Compulsive shopping [Not Recovered/Not Resolved]
  - Economic problem [Unknown]
  - Product use in unapproved indication [Unknown]

NARRATIVE: CASE EVENT DATE: 2004
